FAERS Safety Report 13974891 (Version 7)
Quarter: 2018Q3

REPORT INFORMATION
  Report Type: Spontaneous
  Country: US (occurrence: US)
  Receive Date: 20170914
  Receipt Date: 20180717
  Transmission Date: 20181010
  Serious: Yes (Other)
  Sender: FDA-Public Use
  Company Number: US-ASTELLAS-2017US032462

PATIENT
  Age: 80 Year
  Sex: Male

DRUGS (2)
  1. XTANDI [Suspect]
     Active Substance: ENZALUTAMIDE
     Dosage: 120 MG (3 CAPSULES), ONCE DAILY
     Route: 065
  2. XTANDI [Suspect]
     Active Substance: ENZALUTAMIDE
     Indication: PROSTATE CANCER
     Route: 048
     Dates: start: 20170721

REACTIONS (13)
  - Fluid retention [Unknown]
  - Asthenia [Unknown]
  - Joint noise [Recovered/Resolved]
  - Arthralgia [Recovered/Resolved]
  - Pancreatic neoplasm [Unknown]
  - Joint swelling [Recovered/Resolved]
  - Limb discomfort [Recovered/Resolved]
  - Muscular weakness [Unknown]
  - Back pain [Unknown]
  - Fall [Unknown]
  - Fatigue [Unknown]
  - Weight increased [Unknown]
  - Constipation [Recovered/Resolved]

NARRATIVE: CASE EVENT DATE: 20170807
